FAERS Safety Report 24005597 (Version 6)
Quarter: 2024Q4

REPORT INFORMATION
  Report Type: Spontaneous
  Country: JP (occurrence: JP)
  Receive Date: 20240624
  Receipt Date: 20241008
  Transmission Date: 20250115
  Serious: Yes (Death, Hospitalization, Other)
  Sender: ELI LILLY AND CO
  Company Number: JP-ELI_LILLY_AND_COMPANY-JP202405014051

PATIENT
  Age: 78 Year
  Sex: Male
  Weight: 37 kg

DRUGS (7)
  1. OMVOH [Suspect]
     Active Substance: MIRIKIZUMAB-MRKZ
     Indication: Colitis ulcerative
     Dosage: 200 MG
     Route: 041
     Dates: start: 20231025
  2. OMVOH [Suspect]
     Active Substance: MIRIKIZUMAB-MRKZ
     Indication: Colitis ulcerative
     Dosage: 200 MG
     Route: 058
     Dates: start: 20231122, end: 20240619
  3. LIALDA [Concomitant]
     Active Substance: MESALAMINE
     Indication: Colitis ulcerative
     Route: 048
  4. FERROUS SULFATE [Concomitant]
     Active Substance: FERROUS SULFATE
     Indication: Colitis ulcerative
     Dosage: UNK MG
     Dates: start: 20230509, end: 20240529
  5. GOREISAN [ALISMA PLANTAGO-AQUATICA SUBSP. ORI [Concomitant]
     Dosage: 1 DOSAGE FORM, DAILY
     Route: 048
     Dates: start: 20231010, end: 20240529
  6. ALBUMIN HUMAN [Concomitant]
     Active Substance: ALBUMIN HUMAN
     Indication: Colitis ulcerative
     Dosage: UNK
     Dates: start: 20240704
  7. ALBUMIN HUMAN [Concomitant]
     Active Substance: ALBUMIN HUMAN
     Indication: Hypoalbuminaemia

REACTIONS (7)
  - COVID-19 pneumonia [Fatal]
  - Pneumonia pseudomonal [Fatal]
  - Pneumonia aspiration [Fatal]
  - Colitis ulcerative [Fatal]
  - Cardiac failure [Unknown]
  - Cytomegalovirus enterocolitis [Recovered/Resolved]
  - Off label use [Unknown]

NARRATIVE: CASE EVENT DATE: 20231122
